FAERS Safety Report 4411305-2 (Version None)
Quarter: 2004Q3

REPORT INFORMATION
  Report Type: 
  Country: None (occurrence: None)
  Receive Date: 20040727
  Receipt Date: 20040719
  Transmission Date: 20050211
  Serious: Yes (Hospitalization)
  Sender: FDA-Public Use
  Company Number: HQWYE259120JUL04

PATIENT
  Age: 65 Year
  Sex: Male

DRUGS (7)
  1. PROPRANOLOL HCL [Suspect]
     Dosage: 160 MG 1X PER 1 DAY ORAL
     Route: 048
     Dates: start: 20000101
  2. CREON [Suspect]
     Dates: start: 20040401
  3. LACTEOL (LACTOBACILUS ACIDOPHILUS,) [Suspect]
     Dates: start: 20040401
  4. LOPERAMIDE HCL [Suspect]
     Dosage: 1 DOSE 1X PER 1 DAY
     Dates: start: 20040403, end: 20040415
  5. NOOTROPYL (PIRACETAM,) [Suspect]
     Dosage: 2.4 G 1X PER 1 DAY
     Dates: start: 20000101, end: 20040529
  6. TIORFAN (ACETORPHAN,) [Suspect]
     Dosage: 100 MG 1X PER 1 DAY
     Dates: start: 20040415, end: 20040529
  7. VAGOSTABYL (CALCIUM LACTATE/CRATAEGUS/MAGNESIUM THIOSULFATE/MELISSA EX [Suspect]
     Dosage: 3 DOSE 1X PER 1 DAY
     Dates: start: 20040403, end: 20040529

REACTIONS (1)
  - HEPATITIS [None]
